FAERS Safety Report 22124832 (Version 4)
Quarter: 2025Q2

REPORT INFORMATION
  Report Type: Report from Study
  Country: US (occurrence: US)
  Receive Date: 20230322
  Receipt Date: 20250508
  Transmission Date: 20250716
  Serious: Yes (Hospitalization, Other)
  Sender: TAKEDA
  Company Number: US-TAKEDA-2023TUS029891

PATIENT
  Sex: Male

DRUGS (4)
  1. TEDUGLUTIDE [Suspect]
     Active Substance: TEDUGLUTIDE
     Indication: Short-bowel syndrome
  2. TEDUGLUTIDE [Suspect]
     Active Substance: TEDUGLUTIDE
     Dosage: UNK, QD
  3. TEDUGLUTIDE [Suspect]
     Active Substance: TEDUGLUTIDE
  4. TEDUGLUTIDE [Suspect]
     Active Substance: TEDUGLUTIDE

REACTIONS (11)
  - Parainfluenzae virus infection [Recovering/Resolving]
  - Pharyngitis streptococcal [Recovering/Resolving]
  - Rhinovirus infection [Recovering/Resolving]
  - Adenovirus infection [Unknown]
  - Sepsis [Unknown]
  - COVID-19 [Unknown]
  - Pneumonia bacterial [Unknown]
  - Pneumonia escherichia [Unknown]
  - Haematological infection [Unknown]
  - Ear infection [Unknown]
  - Weight increased [Unknown]
